FAERS Safety Report 23972214 (Version 1)
Quarter: 2024Q2

REPORT INFORMATION
  Report Type: Spontaneous
  Country: US (occurrence: US)
  Receive Date: 20240613
  Receipt Date: 20240613
  Transmission Date: 20240716
  Serious: No
  Sender: FDA-Public Use
  Company Number: US-PFIZER INC-PV202400077177

PATIENT
  Age: 71 Year
  Sex: Female

DRUGS (2)
  1. MEKTOVI [Suspect]
     Active Substance: BINIMETINIB
     Dosage: TAKE 1 TABLET BY MOUTH 2 TIMES A DAY
  2. BRAFTOVI [Suspect]
     Active Substance: ENCORAFENIB
     Dosage: TAKE 2 CAPSULES BY MOUTH DAILY

REACTIONS (2)
  - Neoplasm recurrence [Unknown]
  - Off label use [Unknown]
